FAERS Safety Report 6013172-2 (Version None)
Quarter: 2008Q4

REPORT INFORMATION
  Report Type: 
  Country: None (occurrence: None)
  Receive Date: 20081218
  Receipt Date: 20081218
  Transmission Date: 20090506
  Serious: Yes (Hospitalization)
  Sender: FDA-Public Use
  Company Number: None

PATIENT
  Sex: Male

DRUGS (1)
  1. FENRETINIDE LXS POWDER [Suspect]
     Indication: MYCOSIS FUNGOIDES
     Dosage: 1000 MG PER M2 QD X 7D
     Dates: start: 20081126, end: 20081202

REACTIONS (4)
  - BACTERIA URINE IDENTIFIED [None]
  - BLOOD CULTURE POSITIVE [None]
  - SKIN INFECTION [None]
  - STAPHYLOCOCCAL INFECTION [None]
